FAERS Safety Report 10306835 (Version 1)
Quarter: 2014Q3

REPORT INFORMATION
  Report Type: Spontaneous
  Country: FR (occurrence: FR)
  Receive Date: 20140715
  Receipt Date: 20140715
  Transmission Date: 20150326
  Serious: Yes (Hospitalization)
  Sender: FDA-Public Use
  Company Number: ALCN2014FR003967

PATIENT
  Sex: Female

DRUGS (1)
  1. VEXOL [Suspect]
     Active Substance: RIMEXOLONE
     Dosage: 1 GTT, BID
     Route: 047
     Dates: start: 20070919, end: 20131231

REACTIONS (1)
  - Orbital infection [Recovered/Resolved]

NARRATIVE: CASE EVENT DATE: 2013
